FAERS Safety Report 4825346-4 (Version None)
Quarter: 2005Q4

REPORT INFORMATION
  Report Type: 
  Country: None (occurrence: None)
  Receive Date: 20051111
  Receipt Date: 20051101
  Transmission Date: 20060501
  Serious: Yes (Hospitalization, Other)
  Sender: FDA-Public Use
  Company Number: US-JNJFOC-20051101230

PATIENT
  Sex: Male
  Weight: 107.96 kg

DRUGS (13)
  1. DURAGESIC-100 [Suspect]
     Route: 062
     Dates: start: 20030101
  2. DURAGESIC-100 [Suspect]
     Route: 062
     Dates: start: 20030101
  3. PENTASA [Concomitant]
     Indication: CROHN'S DISEASE
     Route: 048
     Dates: start: 20010101
  4. IMODIUM [Concomitant]
     Indication: CROHN'S DISEASE
     Route: 048
     Dates: start: 19870101
  5. HYZAAR [Concomitant]
     Route: 048
     Dates: start: 20000101
  6. HYZAAR [Concomitant]
     Indication: HYPERTENSION
     Dosage: LOSARTAN 50 MG/HYDROCHLORTHIAZIDE 12.5 MG
     Route: 048
     Dates: start: 20000101
  7. CLONIDINE [Concomitant]
     Indication: HYPERTENSION
     Route: 048
     Dates: start: 20040101
  8. PROVENTIL [Concomitant]
     Indication: ASTHMA
     Dosage: 4 PUFFS IN 24 HOURS, ORAL
     Route: 048
     Dates: start: 20020101
  9. ADVAIR DISKUS 100/50 [Concomitant]
     Route: 048
     Dates: start: 20030101
  10. ADVAIR DISKUS 100/50 [Concomitant]
     Indication: ASTHMA
     Dosage: 2 PUFFS IN 24 HOURS, ORAL
     Route: 048
     Dates: start: 20030101
  11. AVANDIA [Concomitant]
     Route: 048
     Dates: start: 20030101
  12. GLUCOPHAGE [Concomitant]
     Route: 048
     Dates: start: 20030101
  13. HYDROCODONE [Concomitant]
     Indication: PAIN
     Dosage: AS NECESSARY
     Route: 048
     Dates: start: 20040101

REACTIONS (3)
  - HYPERCHOLESTEROLAEMIA [None]
  - PNEUMONIA [None]
  - WEIGHT DECREASED [None]
